FAERS Safety Report 4284141-8 (Version None)
Quarter: 2004Q1

REPORT INFORMATION
  Report Type: 
  Country: None (occurrence: None)
  Receive Date: 20040203
  Receipt Date: 20040202
  Transmission Date: 20041129
  Serious: Yes (Death, Hospitalization)
  Sender: FDA-Public Use
  Company Number: ES-GLAXOSMITHKLINE-A0496219A

PATIENT
  Age: 69 Year
  Sex: Female

DRUGS (2)
  1. NAVELBINE [Suspect]
     Indication: BREAST CANCER
     Dosage: 48MG SEE DOSAGE TEXT
     Route: 042
     Dates: start: 20020902, end: 20021001
  2. STEROID [Suspect]
     Indication: ILL-DEFINED DISORDER
     Route: 065

REACTIONS (17)
  - ABDOMINAL PAIN [None]
  - ANOREXIA [None]
  - ASTHENIA [None]
  - BREAST CANCER FEMALE [None]
  - DIABETES MELLITUS [None]
  - DISEASE PROGRESSION [None]
  - DYSPNOEA [None]
  - HYPERGLYCAEMIA [None]
  - LEUKOPENIA [None]
  - LUNG NEOPLASM [None]
  - MALIGNANT NEOPLASM PROGRESSION [None]
  - MUSCULAR WEAKNESS [None]
  - NEUTROPENIA [None]
  - ODYNOPHAGIA [None]
  - ORAL CANDIDIASIS [None]
  - THROMBOCYTOPENIA [None]
  - WEIGHT DECREASED [None]
